FAERS Safety Report 13781779 (Version 4)
Quarter: 2017Q4

REPORT INFORMATION
  Report Type: Spontaneous
  Country: US (occurrence: US)
  Receive Date: 20170724
  Receipt Date: 20171206
  Transmission Date: 20180320
  Serious: Yes (Life-Threatening, Hospitalization, Other)
  Sender: FDA-Public Use
  Company Number: US-ELI_LILLY_AND_COMPANY-US201707003805

PATIENT
  Age: 70 Year
  Sex: Male
  Weight: 99 kg

DRUGS (18)
  1. TRULICITY [Concomitant]
     Active Substance: DULAGLUTIDE
     Indication: PRODUCT USED FOR UNKNOWN INDICATION
     Dosage: 1.5 MG, UNK
     Route: 058
  2. LANTUS [Concomitant]
     Active Substance: INSULIN GLARGINE
     Indication: TYPE 2 DIABETES MELLITUS
  3. TRESIBA [Concomitant]
     Active Substance: INSULIN DEGLUDEC
     Dosage: 25 U, UNKNOWN
  4. CARVEDILOL. [Concomitant]
     Active Substance: CARVEDILOL
     Indication: PRODUCT USED FOR UNKNOWN INDICATION
     Dosage: 12.5 MG, BID
     Route: 048
  5. HUMALOG [Interacting]
     Active Substance: INSULIN LISPRO
     Dosage: UNK UNK, UNKNOWN
     Route: 058
     Dates: end: 20170511
  6. HUMALOG KWIKPEN [Interacting]
     Active Substance: INSULIN LISPRO
     Indication: TYPE 2 DIABETES MELLITUS
     Dosage: 65 U, TID
     Route: 058
     Dates: start: 20170511
  7. HUMALOG KWIKPEN [Interacting]
     Active Substance: INSULIN LISPRO
     Dosage: 20 U, OTHER
     Route: 058
     Dates: start: 20170511
  8. HUMALOG KWIKPEN [Interacting]
     Active Substance: INSULIN LISPRO
     Dosage: 20 U, OTHER
     Route: 058
  9. PLAVIX [Concomitant]
     Active Substance: CLOPIDOGREL BISULFATE
     Indication: PRODUCT USED FOR UNKNOWN INDICATION
     Dosage: 75 MG, DAILY
     Route: 048
  10. TRESIBA [Concomitant]
     Active Substance: INSULIN DEGLUDEC
     Dosage: 35 U, TID
     Route: 058
  11. HUMALOG KWIKPEN [Interacting]
     Active Substance: INSULIN LISPRO
     Dosage: 65 U, TID
     Route: 058
  12. TRESIBA [Concomitant]
     Active Substance: INSULIN DEGLUDEC
     Indication: TYPE 2 DIABETES MELLITUS
     Dosage: 45 U, DAILY
     Route: 058
  13. ROSUVASTATIN. [Concomitant]
     Active Substance: ROSUVASTATIN
     Indication: PRODUCT USED FOR UNKNOWN INDICATION
     Dosage: 10 MG, DAILY
     Route: 048
  14. SINGULAIR [Concomitant]
     Active Substance: MONTELUKAST SODIUM
     Indication: PRODUCT USED FOR UNKNOWN INDICATION
     Dosage: 10 MG, UNK
     Route: 048
  15. NOVOLOG [Concomitant]
     Active Substance: INSULIN ASPART
     Indication: TYPE 2 DIABETES MELLITUS
     Dosage: 30 U, TID
  16. BCG [Interacting]
     Active Substance: BCG VACCINE
     Indication: RENAL CANCER
     Dosage: UNK, UNKNOWN
     Route: 065
  17. HUMALOG [Suspect]
     Active Substance: INSULIN LISPRO
     Indication: TYPE 2 DIABETES MELLITUS
     Dosage: UNK UNK, UNKNOWN
     Route: 058
     Dates: start: 2012
  18. HUMALOG [Interacting]
     Active Substance: INSULIN LISPRO
     Dosage: 35 U, TID
     Route: 058

REACTIONS (10)
  - Glycosylated haemoglobin increased [Unknown]
  - Urinary bladder polyp [Recovered/Resolved]
  - Bladder cancer [Unknown]
  - Allergy to vaccine [Unknown]
  - Blood glucose increased [Unknown]
  - Influenza like illness [Unknown]
  - Blood glucose decreased [Recovering/Resolving]
  - Renal cancer [Recovered/Resolved]
  - Drug interaction [Unknown]
  - Blood glucose increased [Recovering/Resolving]

NARRATIVE: CASE EVENT DATE: 2012
